FAERS Safety Report 11615773 (Version 1)
Quarter: 2015Q4

REPORT INFORMATION
  Report Type: Spontaneous
  Country: US (occurrence: None)
  Receive Date: 20151008
  Receipt Date: 20151008
  Transmission Date: 20160304
  Serious: Yes (Hospitalization)
  Sender: FDA-Public Use
  Company Number: None

PATIENT
  Age: 82 Year
  Sex: Female
  Weight: 72.58 kg

DRUGS (9)
  1. DIAZEPAM 10 MG DAN 5620 [Suspect]
     Active Substance: DIAZEPAM
     Dosage: I ONLY USED A LEVEL TEASPON FULL + PUT HALF ON EACH ON G..... LEVEL TEACUP
  2. RISPERIDONE 1.5 MG ZYDUS [Suspect]
     Active Substance: RISPERIDONE
  3. AMBIEN [Concomitant]
     Active Substance: ZOLPIDEM TARTRATE
  4. GLIMPIRIDE [Suspect]
     Active Substance: GLIMEPIRIDE
  5. POTASIUM [Concomitant]
  6. CODINE [Concomitant]
     Active Substance: CODEINE
  7. FUROSEMIDE 20 MG [Suspect]
     Active Substance: FUROSEMIDE
  8. UNISONI [Concomitant]
  9. JANUMET [Suspect]
     Active Substance: METFORMIN HYDROCHLORIDE\SITAGLIPTIN PHOSPHATE

REACTIONS (3)
  - Eye disorder [None]
  - Arthropathy [None]
  - Unevaluable event [None]
